FAERS Safety Report 8655435 (Version 2)
Quarter: 2012Q4

REPORT INFORMATION
  Report Type: 
  Country: FR (occurrence: FR)
  Receive Date: 20120709
  Receipt Date: 20121221
  Transmission Date: 20130627
  Serious: Yes (Hospitalization, Other)
  Sender: FDA-Public Use
  Company Number: PHHO2012FR010082

PATIENT

DRUGS (6)
  1. CGP 57148B [Suspect]
     Indication: ACUTE LYMPHOCYTIC LEUKAEMIA
     Dosage: UNK
     Route: 048
     Dates: start: 20120611, end: 20120615
  2. CYTARABINE [Suspect]
     Indication: ACUTE LYMPHOCYTIC LEUKAEMIA
     Dosage: 461.40 mg, UNK
     Route: 042
     Dates: start: 20120611, end: 20120615
  3. CYCLOPHOSPHAMIDE [Suspect]
     Indication: ACUTE LYMPHOCYTIC LEUKAEMIA
     Dosage: 1538 mg, UNK
     Route: 042
     Dates: start: 20120611, end: 20120615
  4. METHOTREXATE [Suspect]
     Indication: ACUTE LYMPHOCYTIC LEUKAEMIA
     Dosage: 12 mg, UNK
     Dates: start: 20120611, end: 20120615
  5. FORTUM [Concomitant]
  6. AMBISOME [Concomitant]

REACTIONS (2)
  - Febrile bone marrow aplasia [Recovered/Resolved]
  - Pancreatitis [Recovered/Resolved]
